FAERS Safety Report 16498708 (Version 2)
Quarter: 2019Q3

REPORT INFORMATION
  Report Type: Report from Study
  Country: AT (occurrence: AT)
  Receive Date: 20190629
  Receipt Date: 20190823
  Transmission Date: 20191004
  Serious: Yes (Hospitalization)
  Sender: FDA-Public Use
  Company Number: AT-SEATTLE GENETICS-2019SGN02235

PATIENT

DRUGS (6)
  1. DEXAMETHASONE. [Suspect]
     Active Substance: DEXAMETHASONE
     Indication: HODGKIN^S DISEASE
     Dosage: 160 MILLIGRAM/SQ. METER
     Route: 065
     Dates: start: 20190320
  2. ETOPOSIDE. [Suspect]
     Active Substance: ETOPOSIDE
     Indication: HODGKIN^S DISEASE
     Dosage: 151.93 MILLIGRAM/SQ. METER
     Route: 065
     Dates: start: 20190320
  3. BRENTUXIMAB VEDOTIN-MPI [Suspect]
     Active Substance: BRENTUXIMAB VEDOTIN
     Indication: HODGKIN^S DISEASE
     Dosage: 138.6 MILLIGRAM/KILOGRAM
     Route: 065
     Dates: start: 20190319
  4. DOXORUBICIN [Suspect]
     Active Substance: DOXORUBICIN
     Indication: HODGKIN^S DISEASE
     Dosage: 39.82 MILLIGRAM/SQ. METER
     Route: 065
     Dates: start: 20190320
  5. DACARBAZINE. [Suspect]
     Active Substance: DACARBAZINE
     Indication: HODGKIN^S DISEASE
     Dosage: 251.48 MILLIGRAM/SQ. METER
     Route: 065
     Dates: start: 20190321
  6. CYCLOPHOSPHAMIDE. [Suspect]
     Active Substance: CYCLOPHOSPHAMIDE
     Indication: HODGKIN^S DISEASE
     Dosage: 1257.39 MILLIGRAM/SQ. METER
     Route: 065
     Dates: start: 20190320

REACTIONS (2)
  - Neutropenia [Recovered/Resolved]
  - Infection [Recovered/Resolved]

NARRATIVE: CASE EVENT DATE: 20190321
